FAERS Safety Report 23263292 (Version 1)
Quarter: 2023Q4

REPORT INFORMATION
  Report Type: Spontaneous
  Country: US (occurrence: None)
  Receive Date: 20231204
  Receipt Date: 20231204
  Transmission Date: 20240110
  Serious: Yes (Disabling)
  Sender: FDA-Public Use
  Company Number: None

PATIENT
  Age: 52 Year
  Sex: Female
  Weight: 61.2 kg

DRUGS (24)
  1. CIPRO [Suspect]
     Active Substance: CIPROFLOXACIN HYDROCHLORIDE
     Indication: Urinary tract infection
     Route: 048
  2. Gaba Pure [Concomitant]
  3. Indica Fruit Chews Ceres Gummy THC [Concomitant]
  4. CANNABIDIOL [Concomitant]
     Active Substance: CANNABIDIOL
  5. Lithium Pure Encapsulations [Concomitant]
  6. Sinus + Seasonal LES Labs [Concomitant]
  7. QUERCETIN [Concomitant]
     Active Substance: QUERCETIN
  8. Stinging Nettle root Extract [Concomitant]
  9. BROMELAINS [Concomitant]
     Active Substance: BROMELAINS
  10. Butterbur Root Extract [Concomitant]
  11. BioPerine Black Pepper Fruit Extract [Concomitant]
  12. Vitamin D3 + K2 Micro Ingredients [Concomitant]
  13. VITAMIN D3 [Concomitant]
     Active Substance: CHOLECALCIFEROL
  14. Sunflower Seed Oil [Concomitant]
  15. Vitamin C + Amen [Concomitant]
  16. VITAMIN C [Concomitant]
     Active Substance: ASCORBIC ACID
  17. ZINC [Concomitant]
     Active Substance: PYRITHIONE ZINC\ZINC\ZINC CHLORIDE
  18. Citrus Bioflavonoid Complex [Concomitant]
  19. Querceting Dihydrate [Concomitant]
  20. Rose Hips Extract (Fruit) [Concomitant]
  21. Elderberry Extract [Concomitant]
  22. Reflux Gourmet Liquid Gel Alginate [Concomitant]
  23. Airborne Gummy [Concomitant]
  24. GAVISCON [Concomitant]
     Active Substance: ALUMINUM HYDROXIDE\MAGNESIUM CARBONATE

REACTIONS (11)
  - Gait disturbance [None]
  - Eye pain [None]
  - Dizziness [None]
  - Insomnia [None]
  - Feeling abnormal [None]
  - Tendon pain [None]
  - Muscle spasms [None]
  - Depression [None]
  - Anxiety [None]
  - Disability [None]
  - Neuralgia [None]

NARRATIVE: CASE EVENT DATE: 20150701
